FAERS Safety Report 10021487 (Version 1)
Quarter: 2014Q1

REPORT INFORMATION
  Report Type: Spontaneous
  Country: US (occurrence: None)
  Receive Date: 20140318
  Receipt Date: 20140318
  Transmission Date: 20141002
  Serious: Yes (Other)
  Sender: FDA-Public Use
  Company Number: None

PATIENT
  Age: 56 Year
  Sex: Female
  Weight: 31.3 kg

DRUGS (1)
  1. PERCOCET [Suspect]
     Indication: NEURALGIA
     Route: 048
     Dates: start: 20140314, end: 20140317

REACTIONS (3)
  - Drug ineffective [None]
  - Pain [None]
  - Muscle contractions involuntary [None]
